FAERS Safety Report 10175210 (Version 1)
Quarter: 2014Q2

REPORT INFORMATION
  Report Type: Spontaneous
  Country: US (occurrence: US)
  Receive Date: 20140515
  Receipt Date: 20140515
  Transmission Date: 20141212
  Serious: No
  Sender: FDA-Public Use
  Company Number: US-VIVUS-2014V1000068

PATIENT
  Age: 48 Year
  Sex: Female
  Weight: 158.45 kg

DRUGS (6)
  1. QSYMIA 3.75MG/23MG [Suspect]
     Indication: WEIGHT DECREASED
     Route: 048
     Dates: start: 20140202, end: 20140203
  2. ZOLOFT [Concomitant]
     Indication: DEPRESSION
     Route: 048
  3. AMLODIPINE [Concomitant]
     Indication: HYPERTENSION
     Route: 048
  4. DIOVAN [Concomitant]
     Indication: HYPERTENSION
     Route: 048
  5. HYDROMORPHINE [Concomitant]
     Indication: BACK PAIN
     Route: 048
  6. UNSPECIFIED CHOLESTEROL MEDICATION [Concomitant]
     Indication: BLOOD CHOLESTEROL
     Route: 048

REACTIONS (3)
  - Ocular hyperaemia [Not Recovered/Not Resolved]
  - Vision blurred [Not Recovered/Not Resolved]
  - Headache [Not Recovered/Not Resolved]
